FAERS Safety Report 23226723 (Version 1)
Quarter: 2023Q4

REPORT INFORMATION
  Report Type: Report from Study
  Country: TH (occurrence: TH)
  Receive Date: 20231124
  Receipt Date: 20231124
  Transmission Date: 20240109
  Serious: Yes (Other)
  Sender: FDA-Public Use
  Company Number: TH-SUN PHARMACEUTICAL INDUSTRIES LTD-2023R1-419977

PATIENT

DRUGS (10)
  1. CHLORPHENIRAMINE [Suspect]
     Active Substance: CHLORPHENIRAMINE
     Indication: Product used for unknown indication
     Dosage: UNK
     Route: 065
  2. DIAZEPAM [Suspect]
     Active Substance: DIAZEPAM
     Indication: Product used for unknown indication
     Dosage: UNK
     Route: 065
  3. HALOPERIDOL [Suspect]
     Active Substance: HALOPERIDOL
     Indication: Product used for unknown indication
     Dosage: UNK
     Route: 065
  4. TRAMADOL [Suspect]
     Active Substance: TRAMADOL\TRAMADOL HYDROCHLORIDE
     Indication: Product used for unknown indication
     Dosage: UNK
     Route: 065
  5. COTININE [Suspect]
     Active Substance: COTININE
     Indication: Product used for unknown indication
     Dosage: UNK
     Route: 065
  6. DINORTRAMADOL [Suspect]
     Active Substance: DINORTRAMADOL
     Indication: Product used for unknown indication
     Dosage: UNK
     Route: 065
  7. 3^-HYDROXYCOTININE, TRANS- [Suspect]
     Active Substance: 3^-HYDROXYCOTININE, TRANS-
     Indication: Product used for unknown indication
     Dosage: UNK
     Route: 065
  8. NICOTINE [Suspect]
     Active Substance: NICOTINE
     Indication: Product used for unknown indication
     Dosage: UNK
     Route: 065
  9. N-DESMETHYLTRAMADOL [Suspect]
     Active Substance: N-DESMETHYLTRAMADOL
     Indication: Product used for unknown indication
     Dosage: UNK
     Route: 065
  10. MONODESMETHYLCHLORPHENIRAMINE [Suspect]
     Active Substance: MONODESMETHYLCHLORPHENIRAMINE
     Indication: Product used for unknown indication
     Dosage: UNK
     Route: 065

REACTIONS (2)
  - Drug abuse [Unknown]
  - Dystonia [Unknown]
